FAERS Safety Report 16846763 (Version 3)
Quarter: 2019Q4

REPORT INFORMATION
  Report Type: Report from Study
  Country: US (occurrence: US)
  Receive Date: 20190924
  Receipt Date: 20191108
  Transmission Date: 20200122
  Serious: Yes (Hospitalization, Other)
  Sender: FDA-Public Use
  Company Number: US-GILEAD-2019-0429971

PATIENT
  Age: 73 Year
  Sex: Female
  Weight: 52.2 kg

DRUGS (1)
  1. AMBRISENTAN [Suspect]
     Active Substance: AMBRISENTAN
     Indication: PULMONARY ARTERIAL HYPERTENSION
     Dosage: 10 MG, QD
     Route: 065
     Dates: start: 20190117

REACTIONS (3)
  - Infection [Unknown]
  - Oral herpes [Recovered/Resolved]
  - Atrial septal defect [Recovered/Resolved]
